FAERS Safety Report 15843826 (Version 1)
Quarter: 2019Q1

REPORT INFORMATION
  Report Type: Spontaneous
  Country: US (occurrence: US)
  Receive Date: 20190118
  Receipt Date: 20190118
  Transmission Date: 20190417
  Serious: No
  Sender: FDA-Public Use
  Company Number: US-PERRIGO-18US004017

PATIENT
  Age: 59 Year
  Sex: Male
  Weight: 70.75 kg

DRUGS (1)
  1. HALOBETASOL PROPIONATE. [Suspect]
     Active Substance: HALOBETASOL PROPIONATE
     Indication: RASH
     Dosage: THIN LAYER, TWICE
     Route: 061
     Dates: start: 20180408, end: 20180408

REACTIONS (3)
  - Heart rate increased [Recovered/Resolved]
  - Hyperaesthesia [Recovered/Resolved]
  - Application site pain [Recovered/Resolved]

NARRATIVE: CASE EVENT DATE: 20180408
